FAERS Safety Report 8432440-8 (Version None)
Quarter: 2012Q2

REPORT INFORMATION
  Report Type: 
  Country: None (occurrence: None)
  Receive Date: 20120613
  Receipt Date: 20120607
  Transmission Date: 20120825
  Serious: Yes (Hospitalization)
  Sender: FDA-Public Use
  Company Number: US-ELI_LILLY_AND_COMPANY-US201205010612

PATIENT
  Sex: Male
  Weight: 131.52 kg

DRUGS (1)
  1. PRASUGREL HYDROCHLORIDE [Suspect]
     Dosage: UNK
     Dates: start: 20120228

REACTIONS (2)
  - CORONARY ARTERY DISEASE [None]
  - ANGINA UNSTABLE [None]
